FAERS Safety Report 6886904-9 (Version None)
Quarter: 2010Q3

REPORT INFORMATION
  Report Type: 
  Country: None (occurrence: None)
  Receive Date: 20100730
  Receipt Date: 20100722
  Transmission Date: 20110219
  Serious: Yes (Other)
  Sender: FDA-Public Use
  Company Number: BE-SANOFI-AVENTIS-2010SA021696

PATIENT
  Sex: Male
  Weight: 70 kg

DRUGS (7)
  1. TAXOTERE [Suspect]
     Indication: PROSTATE CANCER METASTATIC
     Route: 042
     Dates: start: 20100406, end: 20100407
  2. DICLOFENAC [Concomitant]
     Indication: PAIN
     Route: 048
     Dates: end: 20100411
  3. ACETAMINOPHEN [Concomitant]
     Indication: PAIN
     Route: 048
     Dates: end: 20100411
  4. PREDNISONE [Concomitant]
     Dates: start: 20100406, end: 20100410
  5. MEDROL [Concomitant]
     Indication: PROPHYLAXIS
     Dates: end: 20100410
  6. ZOMETA [Concomitant]
     Route: 042
     Dates: start: 20090701
  7. ZOLADEX [Concomitant]
     Indication: PROSTATE CANCER
     Route: 058
     Dates: start: 20090701

REACTIONS (6)
  - AGGRESSION [None]
  - ANURIA [None]
  - BURNING SENSATION [None]
  - CONFUSIONAL STATE [None]
  - MALAISE [None]
  - THROMBOTIC THROMBOCYTOPENIC PURPURA [None]
